FAERS Safety Report 4457265-X (Version None)
Quarter: 2004Q3

REPORT INFORMATION
  Report Type: 
  Country: None (occurrence: None)
  Receive Date: 20040923
  Receipt Date: 20040624
  Transmission Date: 20050211
  Serious: Yes (Other)
  Sender: FDA-Public Use
  Company Number: DE-AMGEN-UK081528

PATIENT
  Sex: Female
  Weight: 41.3 kg

DRUGS (4)
  1. KINERET [Suspect]
     Indication: PRE-EXISTING DISEASE
     Route: 058
     Dates: start: 20040201, end: 20040701
  2. AZATHIOPRINE [Concomitant]
     Route: 048
  3. DECORTIN [Concomitant]
  4. VIOXX [Concomitant]
     Route: 048
     Dates: start: 20040701

REACTIONS (3)
  - BURNING SENSATION [None]
  - INJECTION SITE REACTION [None]
  - PAIN IN EXTREMITY [None]
